FAERS Safety Report 24082767 (Version 1)
Quarter: 2024Q3

REPORT INFORMATION
  Report Type: Spontaneous
  Country: CA (occurrence: CA)
  Receive Date: 20240712
  Receipt Date: 20240712
  Transmission Date: 20241016
  Serious: No
  Sender: SANDOZ
  Company Number: CA-SANDOZ-SDZ2024CA064529

PATIENT
  Sex: Female

DRUGS (1)
  1. ERELZI [Suspect]
     Active Substance: ETANERCEPT-SZZS
     Indication: Juvenile idiopathic arthritis
     Dosage: 50 MG SC WEEKLY
     Route: 058
     Dates: start: 20240209

REACTIONS (4)
  - Injection site pain [Unknown]
  - Medical device change [Unknown]
  - Device difficult to use [Unknown]
  - Product availability issue [Unknown]
